FAERS Safety Report 15998663 (Version 1)
Quarter: 2019Q1

REPORT INFORMATION
  Report Type: Spontaneous
  Country: PT (occurrence: PT)
  Receive Date: 20190223
  Receipt Date: 20190223
  Transmission Date: 20190418
  Serious: Yes (Hospitalization)
  Sender: FDA-Public Use
  Company Number: PT-ACCORD-109471

PATIENT
  Age: 71 Year
  Sex: Female

DRUGS (6)
  1. EPTIFIBATIDE ACCORD [Suspect]
     Active Substance: EPTIFIBATIDE
     Indication: CORONARY ANGIOPLASTY
     Dosage: ADMINISTERED ACCORDING TO WEIGHT (BY SERVICE PROTOCOL)
     Route: 042
     Dates: start: 20180709, end: 20180709
  2. TICAGRELOR. [Concomitant]
     Active Substance: TICAGRELOR
  3. ROSUVASTATIN/ROSUVASTATIN CALCIUM [Concomitant]
  4. ACETYLSALICYLIC ACID [Concomitant]
     Active Substance: ASPIRIN
  5. BISOPROLOL [Concomitant]
     Active Substance: BISOPROLOL
  6. RAMIPRIL. [Concomitant]
     Active Substance: RAMIPRIL

REACTIONS (1)
  - Vessel puncture site haematoma [Recovered/Resolved]

NARRATIVE: CASE EVENT DATE: 20180709
